FAERS Safety Report 21058999 (Version 4)
Quarter: 2023Q4

REPORT INFORMATION
  Report Type: Spontaneous
  Country: US (occurrence: US)
  Receive Date: 20220708
  Receipt Date: 20231218
  Transmission Date: 20240109
  Serious: No
  Sender: FDA-Public Use
  Company Number: US-PFIZER INC-202200512462

PATIENT
  Age: 73 Year
  Sex: Female
  Weight: 73.94 kg

DRUGS (1)
  1. IBRANCE [Suspect]
     Active Substance: PALBOCICLIB
     Indication: Breast cancer female
     Dosage: 100 MG, EVERY DAY FOR 3 WEEKS, OFF FOR A WEEK, NORMAL DOSE; DAILY FOR 21 DAYS ON THEN 7 DAYS OFF

REACTIONS (2)
  - Full blood count abnormal [Recovered/Resolved]
  - Product dispensing error [Unknown]
